FAERS Safety Report 4945034-3 (Version None)
Quarter: 2006Q1

REPORT INFORMATION
  Report Type: 
  Country: None (occurrence: None)
  Receive Date: 20060117
  Receipt Date: 20041117
  Transmission Date: 20060701
  Serious: Yes (Hospitalization)
  Sender: FDA-Public Use
  Company Number: A03200403905

PATIENT
  Age: 77 Year
  Sex: Male
  Weight: 55.3388 kg

DRUGS (4)
  1. PLAVIX [Suspect]
     Indication: STENT PLACEMENT
     Dosage: 75 MG QD - ORAL
     Route: 048
     Dates: start: 20041013, end: 20041114
  2. ACETYLSALICYLIC ACID SRT [Concomitant]
  3. LISINOPRIL [Concomitant]
  4. ATENOLOL [Concomitant]

REACTIONS (2)
  - HAEMOGLOBIN DECREASED [None]
  - MELAENA [None]
